FAERS Safety Report 19481933 (Version 1)
Quarter: 2021Q2

REPORT INFORMATION
  Report Type: Spontaneous
  Country: US (occurrence: US)
  Receive Date: 20210630
  Receipt Date: 20210630
  Transmission Date: 20210717
  Serious: Yes (Other)
  Sender: FDA-Public Use
  Company Number: None

PATIENT
  Age: 67 Year
  Sex: Female

DRUGS (9)
  1. COPAXONE [Suspect]
     Active Substance: GLATIRAMER ACETATE
     Indication: MULTIPLE SCLEROSIS
     Dosage: OTHER FREQUENCY:THREE DAYS A WEEK;?
     Route: 058
  2. BACLOFEN 10 MG [Concomitant]
     Active Substance: BACLOFEN
  3. AMLODIPINE 10 MG [Concomitant]
     Active Substance: AMLODIPINE BESYLATE
  4. DILANTIN 100 MG [Concomitant]
  5. COZAAR [Concomitant]
     Active Substance: LOSARTAN POTASSIUM
  6. DIAZEPAM 5 MG [Concomitant]
     Active Substance: DIAZEPAM
  7. ZANAFLEX [Concomitant]
     Active Substance: TIZANIDINE HYDROCHLORIDE
  8. RESTORIL 30 MG [Concomitant]
  9. LEVOTHYROXINE 0.100 MG [Concomitant]

REACTIONS (2)
  - Nonspecific reaction [None]
  - Chest pain [None]

NARRATIVE: CASE EVENT DATE: 20210630
